FAERS Safety Report 20772820 (Version 2)
Quarter: 2022Q2

REPORT INFORMATION
  Report Type: Spontaneous
  Country: AT (occurrence: None)
  Receive Date: 20220502
  Receipt Date: 20220510
  Transmission Date: 20220721
  Serious: Yes (Death, Hospitalization, Other)
  Sender: FDA-Public Use
  Company Number: AT-ROCHE-3085365

PATIENT
  Age: 35 Year
  Sex: Female

DRUGS (1)
  1. ROZLYTREK [Suspect]
     Active Substance: ENTRECTINIB
     Indication: Product used for unknown indication
     Route: 065
     Dates: start: 202011

REACTIONS (9)
  - Death [Fatal]
  - Vomiting projectile [Unknown]
  - Headache [Unknown]
  - Vision blurred [Unknown]
  - Dyspnoea [Unknown]
  - Therapy non-responder [Unknown]
  - Lymphangiosis carcinomatosa [Unknown]
  - Brain stem haemorrhage [Unknown]
  - Dizziness [Unknown]

NARRATIVE: CASE EVENT DATE: 20210701
